FAERS Safety Report 8773141 (Version 1)
Quarter: 2012Q4

REPORT INFORMATION
  Report Type: 
  Country: SG (occurrence: SG)
  Receive Date: 20120907
  Receipt Date: 20120907
  Transmission Date: 20130627
  Serious: Yes (Other)
  Sender: FDA-Public Use
  Company Number: SG-BRISTOL-MYERS SQUIBB COMPANY-16906414

PATIENT
  Age: 48 Year
  Sex: Male

DRUGS (1)
  1. WARFARIN SODIUM [Suspect]
     Dates: start: 2007

REACTIONS (1)
  - Nephropathy [Unknown]
